FAERS Safety Report 6477661-9 (Version None)
Quarter: 2009Q4

REPORT INFORMATION
  Report Type: 
  Country: None (occurrence: None)
  Receive Date: 20091207
  Receipt Date: 20091201
  Transmission Date: 20100525
  Serious: Yes (Hospitalization)
  Sender: FDA-Public Use
  Company Number: JP-B.I. PHARMACEUTICALS,INC./RIDGEFIELD-2007-BP-25020NB

PATIENT
  Sex: Male
  Weight: 60 kg

DRUGS (14)
  1. MICARDIS [Suspect]
     Indication: HYPERTENSION
     Dosage: 40 MG
     Route: 048
     Dates: start: 20060831
  2. PLAVIX [Concomitant]
     Dosage: 75 MG
     Route: 048
     Dates: start: 20070801
  3. SUCRALFATE [Concomitant]
     Indication: PROPHYLAXIS
     Dosage: 3 G
     Route: 048
     Dates: start: 20070801
  4. MARZULENE-S [Concomitant]
     Indication: PROPHYLAXIS
     Dosage: 1.5 G
     Route: 048
     Dates: start: 20070801
  5. SIGMART [Concomitant]
     Dosage: 15 MG
     Route: 048
     Dates: start: 20060606
  6. LIPITOR [Concomitant]
     Indication: HYPERLIPIDAEMIA
     Dosage: 10 MG
     Route: 048
     Dates: start: 20070801
  7. ADALAT CC [Concomitant]
     Dosage: 40 MG
     Route: 048
     Dates: start: 20060801
  8. ASPIRIN [Concomitant]
     Indication: PROPHYLAXIS
     Dosage: 100 MG
     Route: 048
     Dates: start: 20060801
  9. KREMEZIN [Concomitant]
     Indication: PROPHYLAXIS
     Dosage: 12 G
     Route: 048
     Dates: start: 20060831
  10. ALDACTONE [Concomitant]
     Indication: CARDIAC FAILURE CHRONIC
     Dosage: 75 MG
     Route: 048
     Dates: start: 20050128
  11. ARTIST [Concomitant]
     Dosage: 7.5 MG
     Route: 048
     Dates: start: 20070801
  12. PANALDINE [Concomitant]
     Dosage: 200 MG
     Route: 048
     Dates: start: 19940101, end: 20070801
  13. ANPLAG [Concomitant]
     Dosage: 300 MG
     Route: 048
     Dates: start: 20061220, end: 20070701
  14. GLIMICRON [Concomitant]
     Dosage: 40 MG
     Route: 048
     Dates: start: 20050401, end: 20070701

REACTIONS (2)
  - ANGINA PECTORIS [None]
  - CARDIAC FAILURE CHRONIC [None]
